FAERS Safety Report 24612194 (Version 1)
Quarter: 2024Q4

REPORT INFORMATION
  Report Type: Spontaneous
  Country: DE (occurrence: DE)
  Receive Date: 20241113
  Receipt Date: 20241113
  Transmission Date: 20250115
  Serious: Yes (Other)
  Sender: JOHNSON AND JOHNSON
  Company Number: DE-JNJFOC-20241127096

PATIENT
  Sex: Female

DRUGS (4)
  1. VELCADE [Suspect]
     Active Substance: BORTEZOMIB
     Indication: Primary amyloidosis
     Route: 065
  2. DARZALEX [Suspect]
     Active Substance: DARATUMUMAB
     Indication: Primary amyloidosis
     Route: 065
  3. CYCLOPHOSPHAMIDE [Suspect]
     Active Substance: CYCLOPHOSPHAMIDE
     Indication: Primary amyloidosis
     Route: 065
  4. DEXAMETHASONE [Suspect]
     Active Substance: DEXAMETHASONE
     Indication: Primary amyloidosis
     Route: 065

REACTIONS (2)
  - Cardiotoxicity [Recovered/Resolved]
  - Off label use [Unknown]
